FAERS Safety Report 9018958 (Version 1)
Quarter: 2013Q1

REPORT INFORMATION
  Report Type: Spontaneous
  Country: US (occurrence: US)
  Receive Date: 20130118
  Receipt Date: 20130118
  Transmission Date: 20140127
  Serious: No
  Sender: FDA-Public Use
  Company Number: US-009507513-1301USA006579

PATIENT
  Sex: Female

DRUGS (2)
  1. SINGULAIR [Suspect]
     Dosage: UNK
     Route: 055
  2. VENTOLIN HFA [Concomitant]

REACTIONS (1)
  - Drug ineffective [Unknown]
